FAERS Safety Report 5375262-7 (Version None)
Quarter: 2007Q2

REPORT INFORMATION
  Report Type: 
  Country: None (occurrence: None)
  Receive Date: 20070629
  Receipt Date: 20061027
  Transmission Date: 20071010
  Serious: No
  Sender: FDA-Public Use
  Company Number: US-ASTRAZENECA-2006UW20699

PATIENT
  Age: 63 Year
  Sex: Female
  Weight: 64.9 kg

DRUGS (1)
  1. NOLVADEX [Suspect]
     Indication: BREAST CANCER
     Route: 048
     Dates: start: 20001201, end: 20060101

REACTIONS (3)
  - ALOPECIA [None]
  - CONTUSION [None]
  - HAIR TEXTURE ABNORMAL [None]
